FAERS Safety Report 4739659-8 (Version None)
Quarter: 2005Q3

REPORT INFORMATION
  Report Type: 
  Country: None (occurrence: None)
  Receive Date: 20050809
  Receipt Date: 20050809
  Transmission Date: 20060218
  Serious: Yes (Other)
  Sender: FDA-Public Use
  Company Number: None

PATIENT
  Sex: Male

DRUGS (2)
  1. OXYCODONE ER 80 MG, TEVA [Suspect]
     Dosage: 1 TAB Q 12 HOURS
     Dates: start: 20040902
  2. OXYCODONE ER 20 MG, ENDO [Suspect]
     Dosage: 1 TAB EVERY 12 HOURS
     Dates: start: 20050708

REACTIONS (1)
  - DRUG INEFFECTIVE [None]
